FAERS Safety Report 5276719-X (Version None)
Quarter: 2007Q1

REPORT INFORMATION
  Report Type: 
  Country: None (occurrence: None)
  Receive Date: 20070327
  Receipt Date: 20070321
  Transmission Date: 20070707
  Serious: Yes (Hospitalization)
  Sender: FDA-Public Use
  Company Number: GR-BAYER-200711696GDS

PATIENT
  Age: 60 Year
  Sex: Male

DRUGS (1)
  1. NIFEDIPINE [Suspect]
     Indication: HYPERTENSION
     Route: 060

REACTIONS (7)
  - ALEXIA [None]
  - APHASIA [None]
  - APRAXIA [None]
  - CEREBRAL INFARCTION [None]
  - CONFUSIONAL STATE [None]
  - HYPOAESTHESIA [None]
  - VISUAL FIELD DEFECT [None]
